FAERS Safety Report 4673241-6 (Version None)
Quarter: 2005Q2

REPORT INFORMATION
  Report Type: 
  Country: None (occurrence: None)
  Receive Date: 20050525
  Receipt Date: 20050513
  Transmission Date: 20051028
  Serious: Yes (Hospitalization)
  Sender: FDA-Public Use
  Company Number: 200511292EU

PATIENT
  Age: 72 Year
  Sex: Female

DRUGS (6)
  1. SEGURIL [Suspect]
     Indication: OEDEMA
     Route: 048
     Dates: start: 20050315, end: 20050406
  2. NEORECORMON [Concomitant]
     Indication: IRON DEFICIENCY ANAEMIA
     Dosage: DOSE: 300 UR
     Route: 058
  3. CARDURAN NEO [Concomitant]
     Indication: ESSENTIAL HYPERTENSION
     Route: 048
  4. CELLCEPT [Concomitant]
     Indication: LIVER TRANSPLANT
     Route: 048
  5. PROGRAF [Concomitant]
     Indication: LIVER TRANSPLANT
     Route: 048
  6. TRYPTIZOL [Concomitant]
     Indication: DEPRESSION
     Route: 048

REACTIONS (1)
  - ENCEPHALOPATHY [None]
